FAERS Safety Report 8973470 (Version 1)
Quarter: 2012Q4

REPORT INFORMATION
  Report Type: 
  Country: US (occurrence: US)
  Receive Date: 20121218
  Receipt Date: 20121218
  Transmission Date: 20130627
  Serious: No
  Sender: FDA-Public Use
  Company Number: US-BRISTOL-MYERS SQUIBB COMPANY-16818601

PATIENT
  Age: 32 Year
  Sex: Male

DRUGS (4)
  1. ABILIFY [Suspect]
     Indication: BIPOLAR DISORDER
  2. ABILIFY [Suspect]
     Indication: MENTAL DISORDER
  3. ABILIFY [Suspect]
     Indication: SCHIZOPHRENIA
  4. ABILIFY [Suspect]
     Indication: SUICIDE ATTEMPT

REACTIONS (1)
  - Weight increased [Unknown]
